FAERS Safety Report 5023648-2 (Version None)
Quarter: 2006Q2

REPORT INFORMATION
  Report Type: 
  Country: None (occurrence: None)
  Receive Date: 20060606
  Receipt Date: 20060523
  Transmission Date: 20061013
  Serious: Yes (Hospitalization, Other)
  Sender: FDA-Public Use
  Company Number: HQWYE547725MAY06

PATIENT
  Age: 23 Year
  Sex: Female

DRUGS (9)
  1. EFFEXOR XR [Suspect]
     Dosage: SEE IMAGE
  2. EFFEXOR XR [Suspect]
     Dosage: SEE IMAGE
  3. EFFEXOR XR [Suspect]
     Dosage: SEE IMAGE
  4. ESCITALOPRAM (ESCITALOPRAM) [Suspect]
     Dosage: 10 MG 1X PER 1 DAY
  5. METHYLPHENIDATE HCL [Suspect]
     Dosage: 10 MG (2 DOSES), GIVEN 3 HOURS APART
  6. MIRTAZAPINE [Suspect]
     Dosage: 15 MG 1X PER 1 DAY
  7. TRAZODONE HCL [Suspect]
     Dosage: 100 MG 1X PER 1 DAY
  8. LAMOTRIGINE [Concomitant]
  9. GABAPENTIN [Concomitant]

REACTIONS (9)
  - ASTHENIA [None]
  - BLOOD CATECHOLAMINES INCREASED [None]
  - CHEST PAIN [None]
  - DRUG INTERACTION [None]
  - DRUG INTOLERANCE [None]
  - LETHARGY [None]
  - PALLOR [None]
  - PHARYNGEAL ERYTHEMA [None]
  - SEROTONIN SYNDROME [None]
